FAERS Safety Report 12844331 (Version 1)
Quarter: 2016Q4

REPORT INFORMATION
  Report Type: Spontaneous
  Country: US (occurrence: US)
  Receive Date: 20161012
  Receipt Date: 20161012
  Transmission Date: 20170207
  Serious: Yes (Life-Threatening)
  Sender: FDA-Public Use
  Company Number: None

PATIENT
  Age: 65 Year
  Sex: Male

DRUGS (1)
  1. VASOSTRICT [Suspect]
     Active Substance: VASOPRESSIN

REACTIONS (5)
  - Paraesthesia [None]
  - Cyanosis [None]
  - Hypoaesthesia [None]
  - Gastrointestinal haemorrhage [None]
  - Dysphagia [None]

NARRATIVE: CASE EVENT DATE: 20161009
